FAERS Safety Report 8069641 (Version 4)
Quarter: 2014Q4

REPORT INFORMATION
  Report Type: Spontaneous
  Country: FR (occurrence: FR)
  Receive Date: 20110804
  Receipt Date: 20141028
  Transmission Date: 20150529
  Serious: Yes (Life-Threatening, Hospitalization, Other)
  Sender: FDA-Public Use
  Company Number: FR-JNJFOC-20110800493

PATIENT
  Age: 12 Day
  Sex: Female
  Weight: 1.82 kg

DRUGS (7)
  1. REMICADE [Suspect]
     Active Substance: INFLIXIMAB
     Indication: COLITIS ULCERATIVE
     Dosage: PARENT DOSING ??UNTIL 26 WEEKS OF AMENORRHEA
     Route: 064
     Dates: end: 20110404
  2. OROKEN [Suspect]
     Active Substance: CEFIXIME
     Indication: ESCHERICHIA INFECTION
     Route: 064
  3. POLARAMINE [Suspect]
     Active Substance: DEXCHLORPHENIRAMINE MALEATE
     Indication: PRURITUS
     Route: 064
  4. TRACTOCILE (ATOSIBAN) [Suspect]
     Active Substance: ATOSIBAN
     Indication: THREATENED LABOUR
     Route: 064
  5. CLOMIPHENE [Suspect]
     Active Substance: CLOMIPHENE
     Indication: OVULATION INDUCTION
     Route: 064
  6. ATARAX [Suspect]
     Active Substance: HYDROXYZINE\HYDROXYZINE HYDROCHLORIDE
     Indication: PRURITUS
     Route: 064
  7. FLAGYL [Suspect]
     Active Substance: METRONIDAZOLE\METRONIDAZOLE HYDROCHLORIDE
     Indication: ESCHERICHIA INFECTION
     Route: 064

REACTIONS (8)
  - Omphalitis [Recovered/Resolved]
  - Sepsis [Recovered/Resolved]
  - Neutropenia neonatal [Recovered/Resolved]
  - Enterobacter infection [Not Recovered/Not Resolved]
  - Premature baby [Recovered/Resolved]
  - Staphylococcal infection [Recovered/Resolved]
  - Foetal exposure during pregnancy [Recovered/Resolved]
  - Enterocolitis [Recovered/Resolved]

NARRATIVE: CASE EVENT DATE: 20110713
